FAERS Safety Report 6740622-6 (Version None)
Quarter: 2010Q2

REPORT INFORMATION
  Report Type: 
  Country: None (occurrence: None)
  Receive Date: 20100525
  Receipt Date: 20100511
  Transmission Date: 20101027
  Serious: Yes (Other)
  Sender: FDA-Public Use
  Company Number: JP-MYLANLABS-2010S1008318

PATIENT
  Age: 13 Year
  Sex: Female
  Weight: 44 kg

DRUGS (2)
  1. MERCAPTOPURINE [Suspect]
     Indication: COLITIS ULCERATIVE
     Route: 065
  2. AZATHIOPRINE SODIUM [Concomitant]
     Indication: COLITIS ULCERATIVE
     Route: 065

REACTIONS (2)
  - BLOOD AMYLASE INCREASED [None]
  - LIPASE INCREASED [None]
